FAERS Safety Report 11022415 (Version 1)
Quarter: 2015Q2

REPORT INFORMATION
  Report Type: Spontaneous
  Country: US (occurrence: US)
  Receive Date: 20150413
  Receipt Date: 20150413
  Transmission Date: 20150821
  Serious: Yes (Hospitalization)
  Sender: FDA-Public Use
  Company Number: US-ASTELLAS-2014US007300

PATIENT
  Age: 57 Year
  Sex: Female

DRUGS (1)
  1. PROGRAF [Suspect]
     Active Substance: TACROLIMUS\TACROLIMUS ANHYDROUS
     Indication: LIVER TRANSPLANT
     Route: 065

REACTIONS (7)
  - Magnesium deficiency [Unknown]
  - Haemorrhage [Recovered/Resolved]
  - Atrial fibrillation [Recovered/Resolved]
  - Clostridium difficile infection [Recovered/Resolved]
  - Gastroenteritis viral [Recovered/Resolved]
  - Hypokalaemia [Unknown]
  - Nail disorder [Unknown]

NARRATIVE: CASE EVENT DATE: 2014
